FAERS Safety Report 9263980 (Version 1)
Quarter: 2013Q2

REPORT INFORMATION
  Report Type: Spontaneous
  Country: ES (occurrence: ES)
  Receive Date: 20130430
  Receipt Date: 20130430
  Transmission Date: 20140414
  Serious: Yes (Hospitalization)
  Sender: FDA-Public Use
  Company Number: ES-GLAXOSMITHKLINE-B0888045A

PATIENT
  Age: 53 Year
  Sex: Female
  Weight: 70 kg

DRUGS (2)
  1. TYVERB [Suspect]
     Indication: BREAST CANCER
     Route: 048
     Dates: start: 20110309, end: 20120911
  2. HERCEPTIN [Concomitant]
     Indication: BREAST CANCER
     Dosage: 150MG PER DAY
     Route: 042
     Dates: start: 20110309

REACTIONS (1)
  - Palmar-plantar erythrodysaesthesia syndrome [Unknown]
